FAERS Safety Report 16228332 (Version 1)
Quarter: 2019Q2

REPORT INFORMATION
  Report Type: Spontaneous
  Country: US (occurrence: US)
  Receive Date: 20190423
  Receipt Date: 20190423
  Transmission Date: 20190711
  Serious: Yes (Other)
  Sender: FDA-Public Use
  Company Number: US-NAPPMUNDI-USA-2019-0146273

PATIENT
  Age: 61 Year
  Sex: Female
  Weight: 74.83 kg

DRUGS (4)
  1. MARIJUANA [Suspect]
     Active Substance: CANNABIS SATIVA SUBSP. INDICA TOP
     Indication: DIZZINESS
     Dosage: UNK
     Route: 065
     Dates: start: 201805, end: 201808
  2. FLECTOR                            /00372302/ [Concomitant]
     Active Substance: DICLOFENAC SODIUM
     Indication: ARTHRALGIA
     Dosage: 1.3 UNK, UNK
     Route: 061
  3. OXYCODONE HYDROCHLORIDE (SIMILAR TO NDA 22-272) [Suspect]
     Active Substance: OXYCODONE HYDROCHLORIDE
     Indication: PAIN
     Route: 048
  4. MARIJUANA [Suspect]
     Active Substance: CANNABIS SATIVA SUBSP. INDICA TOP
     Indication: INTERVERTEBRAL DISC DEGENERATION

REACTIONS (5)
  - Drug abuse [Recovered/Resolved]
  - Disturbance in attention [Unknown]
  - Dizziness [Unknown]
  - Inadequate analgesia [Unknown]
  - Anxiety [Unknown]

NARRATIVE: CASE EVENT DATE: 201805
